FAERS Safety Report 11625366 (Version 2)
Quarter: 2015Q4

REPORT INFORMATION
  Report Type: Spontaneous
  Country: US (occurrence: US)
  Receive Date: 20151013
  Receipt Date: 20151016
  Transmission Date: 20160304
  Serious: No
  Sender: FDA-Public Use
  Company Number: US-PFIZER INC-2015339046

PATIENT
  Age: 59 Year
  Sex: Female
  Weight: 49.43 kg

DRUGS (4)
  1. LYRICA [Suspect]
     Active Substance: PREGABALIN
     Dosage: 75 MG, 3X/DAY
     Dates: start: 20151007
  2. PERCOCET [Concomitant]
     Active Substance: ACETAMINOPHEN\OXYCODONE HYDROCHLORIDE
     Indication: BACK DISORDER
     Dosage: UNK
     Dates: start: 201507, end: 201510
  3. PREDNISONE. [Concomitant]
     Active Substance: PREDNISONE
     Dosage: UNK
  4. ADVIL [Concomitant]
     Active Substance: IBUPROFEN
     Indication: PROCEDURAL PAIN
     Dosage: UNK
     Dates: start: 201509

REACTIONS (14)
  - Diplopia [Unknown]
  - Panic reaction [Unknown]
  - Metamorphopsia [Unknown]
  - Presyncope [Unknown]
  - Disorientation [Unknown]
  - Tremor [Unknown]
  - Hallucination [Unknown]
  - Heart rate increased [Unknown]
  - Dry mouth [Unknown]
  - Sedation [Unknown]
  - Vision blurred [Unknown]
  - Dizziness [Unknown]
  - Fear [Unknown]
  - Chromatopsia [Unknown]

NARRATIVE: CASE EVENT DATE: 20151007
